FAERS Safety Report 10297028 (Version 3)
Quarter: 2014Q3

REPORT INFORMATION
  Report Type: Spontaneous
  Country: JP (occurrence: JP)
  Receive Date: 20140711
  Receipt Date: 20140804
  Transmission Date: 20150326
  Serious: Yes (Life-Threatening)
  Sender: FDA-Public Use
  Company Number: JP-ASTRAZENECA-2014SE45343

PATIENT
  Age: 28670 Day
  Sex: Male
  Weight: 48 kg

DRUGS (14)
  1. MUCOSOLVAN L [Concomitant]
     Active Substance: AMBROXOL HYDROCHLORIDE
     Indication: ASTHMA
     Route: 048
     Dates: end: 20140528
  2. GONAX [Suspect]
     Active Substance: DEGARELIX
     Indication: PROSTATE CANCER
     Route: 058
     Dates: start: 20140516, end: 20140516
  3. TAKEPRON [Concomitant]
     Active Substance: LANSOPRAZOLE
     Indication: PROPHYLAXIS AGAINST GASTROINTESTINAL ULCER
     Route: 048
     Dates: end: 20140528
  4. ATARAX-P [Concomitant]
     Active Substance: HYDROXYZINE HYDROCHLORIDE
     Route: 048
     Dates: end: 20140528
  5. CASODEX [Suspect]
     Active Substance: BICALUTAMIDE
     Indication: PROSTATE CANCER
     Route: 048
     Dates: start: 20140516, end: 20140528
  6. OXYCONTIN [Concomitant]
     Active Substance: OXYCODONE HYDROCHLORIDE
     Indication: CANCER PAIN
     Route: 048
     Dates: start: 20140516
  7. EDIROL [Concomitant]
     Active Substance: ELDECALCITOL
     Indication: OSTEOPOROSIS
     Route: 048
     Dates: end: 20140528
  8. ACCOLATE [Concomitant]
     Active Substance: ZAFIRLUKAST
     Indication: ASTHMA
     Route: 048
     Dates: end: 20140528
  9. OXYCONTIN [Concomitant]
     Active Substance: OXYCODONE HYDROCHLORIDE
     Indication: CANCER PAIN
     Route: 048
     Dates: end: 20140528
  10. NORVASC [Concomitant]
     Active Substance: AMLODIPINE BESYLATE
     Indication: HYPERTENSION
     Route: 048
     Dates: end: 20140528
  11. LOXONIN [Concomitant]
     Active Substance: LOXOPROFEN SODIUM
     Indication: CANCER PAIN
     Route: 048
     Dates: start: 20140421, end: 20140528
  12. VOLTAREN [Concomitant]
     Active Substance: DICLOFENAC SODIUM
     Route: 048
     Dates: end: 20140528
  13. SORENTMIN [Concomitant]
     Active Substance: BROTIZOLAM
     Indication: INSOMNIA
     Route: 048
  14. TIZANIDINE [Concomitant]
     Active Substance: TIZANIDINE
     Route: 048
     Dates: end: 20140528

REACTIONS (4)
  - Septic shock [Recovered/Resolved]
  - Disseminated intravascular coagulation [Recovered/Resolved]
  - Renal failure acute [Recovered/Resolved]
  - Interstitial lung disease [Recovered/Resolved]

NARRATIVE: CASE EVENT DATE: 20140529
